FAERS Safety Report 10920560 (Version 1)
Quarter: 2015Q1

REPORT INFORMATION
  Report Type: Spontaneous
  Country: BE (occurrence: BE)
  Receive Date: 20150317
  Receipt Date: 20150317
  Transmission Date: 20150721
  Serious: Yes (Hospitalization)
  Sender: FDA-Public Use
  Company Number: PHHY2015BE028965

PATIENT
  Age: 62 Year
  Sex: Female

DRUGS (4)
  1. TOVIAZ [Concomitant]
     Active Substance: FESOTERODINE FUMARATE
     Indication: PRODUCT USED FOR UNKNOWN INDICATION
     Dosage: 8 MG, QD
     Route: 065
  2. CLOTIAZEPAM [Concomitant]
     Active Substance: CLOTIAZEPAM
     Indication: PRODUCT USED FOR UNKNOWN INDICATION
     Dosage: 0.5 DF, QD
     Route: 065
  3. GILENYA [Suspect]
     Active Substance: FINGOLIMOD HYDROCHLORIDE
     Indication: PRODUCT USED FOR UNKNOWN INDICATION
     Dosage: 0.5 MG, QD
     Route: 048
     Dates: start: 20141009
  4. ONBREZ [Concomitant]
     Active Substance: INDACATEROL
     Indication: CHRONIC OBSTRUCTIVE PULMONARY DISEASE
     Dosage: UNK UKN, UNK
     Route: 065

REACTIONS (5)
  - Chronic obstructive pulmonary disease [Recovering/Resolving]
  - Bronchitis [Recovering/Resolving]
  - C-reactive protein increased [Unknown]
  - Asthenia [Recovering/Resolving]
  - White blood cell count decreased [Unknown]

NARRATIVE: CASE EVENT DATE: 20150303
